FAERS Safety Report 9627026 (Version 1)
Quarter: 2013Q4

REPORT INFORMATION
  Report Type: Report from Study
  Country: NL (occurrence: NL)
  Receive Date: 20131016
  Receipt Date: 20131016
  Transmission Date: 20140711
  Serious: Yes (Other)
  Sender: FDA-Public Use
  Company Number: NL-US-EMD SERONO, INC.-7242700

PATIENT
  Age: 53 Year
  Sex: Female
  Weight: 62 kg

DRUGS (2)
  1. REBIF [Suspect]
     Indication: MULTIPLE SCLEROSIS
     Route: 058
     Dates: start: 1996
  2. RIVOTRIL [Concomitant]
     Indication: PARAESTHESIA
     Route: 048
     Dates: start: 2007

REACTIONS (1)
  - Lipodystrophy acquired [Not Recovered/Not Resolved]
